FAERS Safety Report 12315581 (Version 2)
Quarter: 2016Q2

REPORT INFORMATION
  Report Type: Spontaneous
  Country: IT (occurrence: IT)
  Receive Date: 20160428
  Receipt Date: 20160504
  Transmission Date: 20160815
  Serious: Yes (Hospitalization)
  Sender: FDA-Public Use
  Company Number: IT-BAYER-2016-076912

PATIENT
  Age: 45 Year
  Sex: Male
  Weight: 58 kg

DRUGS (12)
  1. TORVAST [Suspect]
     Active Substance: ATORVASTATIN
     Dosage: DAILY DOSE 80 MG
     Route: 048
  2. ANTRA [Suspect]
     Active Substance: OMEPRAZOLE
     Dosage: DAILY DOSE 40 MG
     Route: 048
     Dates: start: 20160329, end: 20160329
  3. CLOPIDOGREL [Suspect]
     Active Substance: CLOPIDOGREL BISULFATE
     Dosage: DAILY DOSE 75 MG
     Route: 048
     Dates: start: 20160329, end: 20160412
  4. MESALAZINE [Concomitant]
     Active Substance: MESALAMINE
     Dosage: DAILY DOSE 2400 MG
     Route: 048
     Dates: start: 20160407
  5. AGGRASTAT [Suspect]
     Active Substance: TIROFIBAN HYDROCHLORIDE
  6. PANTORC [Suspect]
     Active Substance: PANTOPRAZOLE SODIUM
     Dosage: DAILY DOSE 40 MG
     Route: 048
     Dates: start: 20160330, end: 20160412
  7. TRIATEC [Suspect]
     Active Substance: RAMIPRIL
     Dosage: DAILY DOSE 2.5 MG
     Route: 048
  8. MESALAZINE [Concomitant]
     Active Substance: MESALAMINE
     Dosage: DAILY DOSE 2400 MG
     Route: 048
     Dates: end: 20160329
  9. CARDIOASPIRIN [Suspect]
     Active Substance: ASPIRIN
     Dosage: DAILY DOSE 100 MG
     Route: 048
     Dates: start: 20160329, end: 20160412
  10. SELOKEN [Suspect]
     Active Substance: METOPROLOL
     Indication: ACUTE MYOCARDIAL INFARCTION
     Dosage: DAILY DOSE 100 MG
     Route: 048
     Dates: start: 20160329
  11. CLEXANE [Suspect]
     Active Substance: ENOXAPARIN SODIUM
     Dosage: DAILY DOSE 6000 IU
     Route: 058
     Dates: start: 20160329
  12. MESALAZINE [Concomitant]
     Active Substance: MESALAMINE
     Dosage: DAILY DOSE 2400 MG
     Route: 048
     Dates: start: 20160407

REACTIONS (3)
  - Colitis ulcerative [Recovering/Resolving]
  - Diarrhoea [Recovering/Resolving]
  - Anaemia [Recovering/Resolving]

NARRATIVE: CASE EVENT DATE: 20160330
